FAERS Safety Report 20979976 (Version 18)
Quarter: 2024Q1

REPORT INFORMATION
  Report Type: Report from Study
  Country: US (occurrence: US)
  Receive Date: 20220620
  Receipt Date: 20240119
  Transmission Date: 20240409
  Serious: No
  Sender: FDA-Public Use
  Company Number: US-NOVARTISTESTPH-NVSC2022US140056

PATIENT
  Sex: Female

DRUGS (1)
  1. KESIMPTA [Suspect]
     Active Substance: OFATUMUMAB
     Indication: Multiple sclerosis
     Dosage: UNK
     Route: 058
     Dates: start: 20211020

REACTIONS (14)
  - Paraesthesia [Unknown]
  - Arthralgia [Unknown]
  - Swelling [Unknown]
  - Central nervous system lesion [Unknown]
  - Carpal tunnel syndrome [Recovering/Resolving]
  - Hypoaesthesia [Recovering/Resolving]
  - Tachyphrenia [Unknown]
  - Fungal infection [Unknown]
  - Injection site bruising [Unknown]
  - Insomnia [Unknown]
  - Sinus tachycardia [Unknown]
  - Cardiomegaly [Unknown]
  - Ventricular extrasystoles [Unknown]
  - Drug ineffective [Unknown]
